FAERS Safety Report 7466460-7 (Version None)
Quarter: 2011Q2

REPORT INFORMATION
  Report Type: 
  Country: None (occurrence: None)
  Receive Date: 20110509
  Receipt Date: 20100816
  Transmission Date: 20111010
  Serious: Yes (Hospitalization)
  Sender: FDA-Public Use
  Company Number: US-ALEXION-A201000999

PATIENT
  Sex: Female

DRUGS (1)
  1. SOLIRIS [Suspect]
     Indication: PAROXYSMAL NOCTURNAL HAEMOGLOBINURIA
     Dosage: 1200 MG, Q2W
     Route: 042

REACTIONS (7)
  - ASTHENIA [None]
  - DEHYDRATION [None]
  - DYSPNOEA [None]
  - COORDINATION ABNORMAL [None]
  - WHEEZING [None]
  - TACHYCARDIA [None]
  - HYPOMAGNESAEMIA [None]
